FAERS Safety Report 15836521 (Version 2)
Quarter: 2019Q1

REPORT INFORMATION
  Report Type: Report from Study
  Country: US (occurrence: US)
  Receive Date: 20190117
  Receipt Date: 20190312
  Transmission Date: 20190417
  Serious: Yes (Other)
  Sender: FDA-Public Use
  Company Number: PHEH2019US001954

PATIENT
  Sex: Female

DRUGS (1)
  1. GILENYA [Suspect]
     Active Substance: FINGOLIMOD HYDROCHLORIDE
     Indication: MULTIPLE SCLEROSIS
     Dosage: 0.5 MG, QD
     Route: 048
     Dates: start: 20171011

REACTIONS (9)
  - Dizziness [Unknown]
  - Fatigue [Unknown]
  - Diplopia [Not Recovered/Not Resolved]
  - Hypoaesthesia [Unknown]
  - Asthenia [Unknown]
  - Visual impairment [Unknown]
  - Mental impairment [Unknown]
  - Multiple sclerosis relapse [Unknown]
  - Feeling abnormal [Not Recovered/Not Resolved]

NARRATIVE: CASE EVENT DATE: 2018
